FAERS Safety Report 7155064-1 (Version None)
Quarter: 2010Q4

REPORT INFORMATION
  Report Type: 
  Country: None (occurrence: None)
  Receive Date: 20101214
  Receipt Date: 20100126
  Transmission Date: 20110411
  Serious: Yes (Other)
  Sender: FDA-Public Use
  Company Number: US-AMGEN-QUU363199

PATIENT

DRUGS (3)
  1. ENBREL [Suspect]
     Indication: PSORIASIS
     Dosage: 50 MG, QWK
     Route: 058
     Dates: start: 20060726
  2. BETAMETHASONE DIPROPIONATE [Concomitant]
     Dosage: .05 %, UNK
     Dates: start: 20091022, end: 20091114
  3. TRIAMCINOLONE [Concomitant]
     Dosage: .19 %, UNK
     Dates: start: 20091022, end: 20091207

REACTIONS (2)
  - ALCOHOL USE [None]
  - LIVER FUNCTION TEST ABNORMAL [None]
